FAERS Safety Report 12052306 (Version 1)
Quarter: 2016Q1

REPORT INFORMATION
  Report Type: Spontaneous
  Country: None (occurrence: None)
  Receive Date: 20160208
  Receipt Date: 20160208
  Transmission Date: 20160526
  Serious: Yes (Other)
  Sender: FDA-Public Use
  Company Number: None

PATIENT
  Age: 57 Year
  Sex: Female
  Weight: 66.23 kg

DRUGS (4)
  1. ATENOLOL-CHLORTHALIDONE [Concomitant]
  2. ASPIRIN. [Concomitant]
     Active Substance: ASPIRIN
  3. VOTRIENT [Suspect]
     Active Substance: PAZOPANIB HYDROCHLORIDE
     Indication: RENAL CELL CARCINOMA
     Dates: start: 20150919, end: 20160205
  4. ATORVASTATIN [Concomitant]
     Active Substance: ATORVASTATIN

REACTIONS (4)
  - Hyperkalaemia [None]
  - Polycythaemia [None]
  - Procedural complication [None]
  - Cerebrovascular accident [None]

NARRATIVE: CASE EVENT DATE: 20151205
